FAERS Safety Report 23457865 (Version 4)
Quarter: 2025Q3

REPORT INFORMATION
  Report Type: Report from Study
  Country: EU (occurrence: EU)
  Receive Date: 20240130
  Receipt Date: 20250820
  Transmission Date: 20251020
  Serious: Yes (Congenital Anomaly, Other)
  Sender: ALEXION PHARMACEUTICALS
  Company Number: 2024A020393

PATIENT
  Sex: Female
  Weight: 3.77 kg

DRUGS (21)
  1. SYMBICORT [Suspect]
     Active Substance: BUDESONIDE\FORMOTEROL FUMARATE DIHYDRATE
  2. COVID-19 VACCINE NOS [Suspect]
     Active Substance: COVID-19 VACCINE
     Indication: Product used for unknown indication
  3. COVID-19 VACCINE NOS [Suspect]
     Active Substance: COVID-19 VACCINE
  4. COVID-19 VACCINE NOS [Suspect]
     Active Substance: COVID-19 VACCINE
  5. COVID-19 VACCINE NOS [Suspect]
     Active Substance: COVID-19 VACCINE
  6. DUPILUMAB [Suspect]
     Active Substance: DUPILUMAB
     Indication: Product used for unknown indication
     Route: 065
  7. DUPILUMAB [Suspect]
     Active Substance: DUPILUMAB
     Indication: Eczema
  8. DUPILUMAB [Suspect]
     Active Substance: DUPILUMAB
  9. DUPILUMAB [Suspect]
     Active Substance: DUPILUMAB
  10. LEVOCETIRIZINE HYDROCHLORIDE [Suspect]
     Active Substance: LEVOCETIRIZINE HYDROCHLORIDE
     Indication: Product used for unknown indication
     Route: 065
  11. MOMETASONE [Suspect]
     Active Substance: MOMETASONE
     Indication: Product used for unknown indication
     Route: 065
  12. MOMETASONE [Suspect]
     Active Substance: MOMETASONE
  13. MOMETASONE [Suspect]
     Active Substance: MOMETASONE
  14. ACETAMINOPHEN [Suspect]
     Active Substance: ACETAMINOPHEN
     Indication: Renal transplant
     Route: 065
  15. ACETAMINOPHEN [Suspect]
     Active Substance: ACETAMINOPHEN
     Indication: Product used for unknown indication
  16. ACETAMINOPHEN [Suspect]
     Active Substance: ACETAMINOPHEN
  17. ACETAMINOPHEN [Suspect]
     Active Substance: ACETAMINOPHEN
  18. SALICYLIC ACID [Suspect]
     Active Substance: SALICYLIC ACID
     Indication: Renal transplant
     Route: 065
  19. SALICYLIC ACID [Suspect]
     Active Substance: SALICYLIC ACID
     Indication: Product used for unknown indication
  20. SALICYLIC ACID [Suspect]
     Active Substance: SALICYLIC ACID
  21. SALICYLIC ACID [Suspect]
     Active Substance: SALICYLIC ACID

REACTIONS (2)
  - Ventricular septal defect [Unknown]
  - Paternal exposure during pregnancy [Unknown]
